FAERS Safety Report 7952749-1 (Version None)
Quarter: 2011Q4

REPORT INFORMATION
  Report Type: 
  Country: None (occurrence: None)
  Receive Date: 20111129
  Receipt Date: 20111117
  Transmission Date: 20120403
  Serious: Yes (Death, Hospitalization)
  Sender: FDA-Public Use
  Company Number: POMP-1000287

PATIENT
  Age: 77 Year
  Sex: Male
  Weight: 71 kg

DRUGS (1)
  1. MYOZYME [Suspect]
     Indication: GLYCOGEN STORAGE DISEASE TYPE II
     Dosage: 20 MG/KG, Q2W, INTRAVENOUS
     Route: 042
     Dates: start: 20070222

REACTIONS (4)
  - CARDIAC FAILURE [None]
  - RESPIRATORY FAILURE [None]
  - DECUBITUS ULCER [None]
  - MYOCARDIAL INFARCTION [None]
